FAERS Safety Report 7497116-2 (Version None)
Quarter: 2011Q2

REPORT INFORMATION
  Report Type: 
  Country: None (occurrence: None)
  Receive Date: 20110523
  Receipt Date: 20110511
  Transmission Date: 20111010
  Serious: Yes (Hospitalization)
  Sender: FDA-Public Use
  Company Number: PHHY2011GB39509

PATIENT
  Age: 35 Year
  Sex: Female

DRUGS (4)
  1. PREDNISOLONE [Suspect]
     Indication: ROSACEA
     Dosage: 30MG
  2. DIAZEPAM [Suspect]
     Indication: ANXIETY
     Dosage: UNK UKN, UNK
  3. PREDNISOLONE [Suspect]
     Dosage: 45 MG
  4. ERYTHROMYCIN [Suspect]
     Indication: ROSACEA
     Dosage: 2 G

REACTIONS (8)
  - ANXIETY [None]
  - DRUG INEFFECTIVE [None]
  - EMOTIONAL DISTRESS [None]
  - DRUG EXPOSURE DURING PREGNANCY [None]
  - AGITATION [None]
  - SCAR [None]
  - TEARFULNESS [None]
  - TELANGIECTASIA [None]
